FAERS Safety Report 8093977-7 (Version None)
Quarter: 2012Q1

REPORT INFORMATION
  Report Type: 
  Country: None (occurrence: None)
  Receive Date: 20120130
  Receipt Date: 20120125
  Transmission Date: 20120608
  Serious: Yes (Death)
  Sender: FDA-Public Use
  Company Number: US-CELGENEUS-163-21880-12012576

PATIENT
  Sex: Female

DRUGS (10)
  1. REVLIMID [Suspect]
     Dosage: 15-10MG
     Route: 048
     Dates: start: 20100801, end: 20110101
  2. REVLIMID [Suspect]
     Dosage: 25 MILLIGRAM
     Route: 048
     Dates: start: 20111201
  3. ASPIR-LOW [Concomitant]
     Route: 065
  4. REVLIMID [Suspect]
     Indication: MULTIPLE MYELOMA
     Dosage: 25 MILLIGRAM
     Route: 048
     Dates: start: 20100303, end: 20100101
  5. LOVAZA [Concomitant]
     Route: 065
  6. PROCHLORPERAZINE MALEATE [Concomitant]
     Route: 065
  7. LISINOPRIL AND HYDROCHLOROTHIAZIDE [Concomitant]
     Route: 065
  8. VITAMIN B6 [Concomitant]
     Route: 065
  9. OMEPRAZOLE [Concomitant]
     Route: 065
  10. MULTI-DAY VITAMINS [Concomitant]
     Route: 065

REACTIONS (1)
  - DEATH [None]
